FAERS Safety Report 12874360 (Version 1)
Quarter: 2016Q4

REPORT INFORMATION
  Report Type: Spontaneous
  Country: CN (occurrence: CN)
  Receive Date: 20161021
  Receipt Date: 20161021
  Transmission Date: 20170207
  Serious: Yes (Other)
  Sender: FDA-Public Use
  Company Number: PHHY2016CN145082

PATIENT
  Age: 48 Year
  Sex: Male
  Weight: 68 kg

DRUGS (2)
  1. SEBIVO [Suspect]
     Active Substance: TELBIVUDINE
     Indication: CHRONIC HEPATITIS B
     Dosage: 0.6 G, QD
     Route: 048
     Dates: start: 20160105, end: 20160821
  2. ENTECAVIR. [Concomitant]
     Active Substance: ENTECAVIR
     Indication: CHRONIC HEPATITIS B
     Dosage: 0.5 MG, QD
     Route: 048
     Dates: start: 20160105, end: 20160821

REACTIONS (2)
  - Blood creatine phosphokinase increased [Recovering/Resolving]
  - Asthenia [Recovering/Resolving]

NARRATIVE: CASE EVENT DATE: 20160821
